FAERS Safety Report 5574600-X (Version None)
Quarter: 2007Q4

REPORT INFORMATION
  Report Type: 
  Country: None (occurrence: None)
  Receive Date: 20071227
  Receipt Date: 20071224
  Transmission Date: 20080405
  Serious: Yes (Other)
  Sender: FDA-Public Use
  Company Number: ZA-BRISTOL-MYERS SQUIBB COMPANY-14024517

PATIENT
  Sex: Male

DRUGS (8)
  1. ISONIAZID [Suspect]
     Indication: TUBERCULOSIS
  2. STAVUDINE [Suspect]
     Indication: HIV INFECTION
  3. COTRIM [Suspect]
     Indication: HIV INFECTION
  4. ETHAMBUTOL HYDROCHLORIDE [Suspect]
     Indication: TUBERCULOSIS
  5. LAMIVUDINE [Suspect]
     Indication: HIV INFECTION
  6. NEVIRAPINE [Suspect]
     Indication: HIV INFECTION
  7. PYRAZINAMIDE [Suspect]
     Indication: TUBERCULOSIS
  8. RIFAMPICIN [Suspect]
     Indication: TUBERCULOSIS

REACTIONS (2)
  - DANDY-WALKER SYNDROME [None]
  - PREGNANCY [None]
